FAERS Safety Report 24718763 (Version 1)
Quarter: 2024Q4

REPORT INFORMATION
  Report Type: Spontaneous
  Country: US (occurrence: US)
  Receive Date: 20241210
  Receipt Date: 20241210
  Transmission Date: 20250115
  Serious: No
  Sender: PFIZER
  Company Number: US-PFIZER INC-202400317959

PATIENT
  Age: 79 Year
  Sex: Female
  Weight: 55.79 kg

DRUGS (1)
  1. IBRANCE [Suspect]
     Active Substance: PALBOCICLIB
     Dosage: 125 MG, CYCLIC (ONCE A DAY, 3 WEEK AND 1 WEEK OFF)
     Route: 048

REACTIONS (3)
  - Chest pain [Unknown]
  - Chest discomfort [Unknown]
  - White blood cell count decreased [Unknown]
